FAERS Safety Report 8122145-5 (Version None)
Quarter: 2012Q1

REPORT INFORMATION
  Report Type: 
  Country: None (occurrence: None)
  Receive Date: 20120208
  Receipt Date: 20120131
  Transmission Date: 20120608
  Serious: Yes (Other)
  Sender: FDA-Public Use
  Company Number: US-BAYER-2011-050140

PATIENT
  Age: 41 Year
  Sex: Female
  Weight: 75.737 kg

DRUGS (7)
  1. YASMIN [Suspect]
     Indication: CONTRACEPTION
     Dosage: UNK
     Dates: start: 20060221, end: 20070301
  2. DOXYCYCLINE HYCLATE [Concomitant]
     Dosage: UNK
     Dates: start: 20040101, end: 20090101
  3. HYOSCYAMINE [Concomitant]
     Dosage: 0.125 MG, UNK
     Route: 048
     Dates: start: 20080501
  4. YASMIN [Suspect]
     Dosage: UNK
     Dates: start: 20080701, end: 20090601
  5. DEPO-TESTOSTERONE [Concomitant]
     Dosage: 100 MG, UNK
     Route: 030
     Dates: start: 20080717
  6. YAZ [Suspect]
     Indication: CONTRACEPTION
     Dosage: UNK
     Dates: start: 20070301, end: 20080724
  7. LEVSIN [Concomitant]
     Dosage: UNK
     Dates: start: 20080601

REACTIONS (8)
  - NAUSEA [None]
  - INJURY [None]
  - VOMITING [None]
  - EMOTIONAL DISTRESS [None]
  - PAIN [None]
  - CHOLECYSTITIS CHRONIC [None]
  - ANHEDONIA [None]
  - FOOD INTOLERANCE [None]
